FAERS Safety Report 15076066 (Version 1)
Quarter: 2018Q2

REPORT INFORMATION
  Report Type: Report from Study
  Country: US (occurrence: US)
  Receive Date: 20180627
  Receipt Date: 20180627
  Transmission Date: 20180711
  Serious: Yes (Other)
  Sender: FDA-Public Use
  Company Number: US-MALLINCKRODT-T201800330

PATIENT
  Sex: Female
  Weight: 99 kg

DRUGS (5)
  1. PREDNISONE. [Concomitant]
     Active Substance: PREDNISONE
     Indication: PRODUCT USED FOR UNKNOWN INDICATION
     Dosage: UNK
     Route: 065
  2. REPOSITORY CORTICOTROPIN INJECTION [Suspect]
     Active Substance: CORTICOTROPIN
     Indication: DERMATOMYOSITIS
     Dosage: 40 UNITS / .5 ML, 2 TIMES PER WEEK, THURSDAY AND SUNDAY
     Route: 058
  3. REPOSITORY CORTICOTROPIN INJECTION [Suspect]
     Active Substance: CORTICOTROPIN
     Indication: ANKYLOSING SPONDYLITIS
     Dosage: 40 UNITS / .5 ML, EVERY 3 DAYS / EVERY 72 HOURS
     Route: 058
     Dates: start: 20170103, end: 20180109
  4. REPOSITORY CORTICOTROPIN INJECTION [Suspect]
     Active Substance: CORTICOTROPIN
     Indication: POLYMYOSITIS
     Dosage: 20 UNITS / .25 ML MONDAY, WEDNESDAY, FRIDAY
     Route: 058
  5. REPOSITORY CORTICOTROPIN INJECTION [Suspect]
     Active Substance: CORTICOTROPIN
     Dosage: 80 UNITS, 3 TIMES A WEEK
     Route: 065

REACTIONS (13)
  - Polymyositis [Not Recovered/Not Resolved]
  - Hypersomnia [Not Recovered/Not Resolved]
  - Infection [Unknown]
  - Condition aggravated [Not Recovered/Not Resolved]
  - Neck pain [Unknown]
  - Dermatomyositis [Not Recovered/Not Resolved]
  - Contusion [Unknown]
  - Pancreatitis [Unknown]
  - Peripheral swelling [Unknown]
  - Pain [Unknown]
  - Headache [Unknown]
  - Ankylosing spondylitis [Not Recovered/Not Resolved]
  - Swelling face [Unknown]
